FAERS Safety Report 4551619-9 (Version None)
Quarter: 2005Q1

REPORT INFORMATION
  Report Type: 
  Country: None (occurrence: None)
  Receive Date: 20050110
  Receipt Date: 20041230
  Transmission Date: 20050727
  Serious: Yes (Other)
  Sender: FDA-Public Use
  Company Number: 2004116383

PATIENT
  Sex: Male

DRUGS (8)
  1. SPIRONOLACTONE [Suspect]
     Indication: ILL-DEFINED DISORDER
  2. PENICILLAMINE [Suspect]
     Indication: ILL-DEFINED DISORDER
  3. FUROSEMIDE               (FUROSEMIDE) [Suspect]
     Indication: ILL-DEFINED DISORDER
  4. DEXAMETHASONE [Suspect]
     Indication: ILL-DEFINED DISORDER
  5. POTASSIUM CHLORIDE [Suspect]
     Indication: ILL-DEFINED DISORDER
  6. ACETAMINOPHEN [Suspect]
     Indication: ILL-DEFINED DISORDER
  7. ASPIRIN [Suspect]
     Indication: ILL-DEFINED DISORDER
  8. FERROGRAD C              (FERROUS SULFATE EXSICCATED, SODIUM ASCORBATE [Suspect]
     Indication: ILL-DEFINED DISORDER

REACTIONS (3)
  - ADRENOGENITAL SYNDROME [None]
  - CRYPTORCHISM [None]
  - DRUG EXPOSURE DURING PREGNANCY [None]
